FAERS Safety Report 19025034 (Version 1)
Quarter: 2021Q1

REPORT INFORMATION
  Report Type: Spontaneous
  Country: US (occurrence: US)
  Receive Date: 20210318
  Receipt Date: 20210318
  Transmission Date: 20210420
  Serious: No
  Sender: FDA-Public Use
  Company Number: US-ASTRAZENECA-2021A122439

PATIENT
  Sex: Female

DRUGS (2)
  1. BYDUREON [Suspect]
     Active Substance: EXENATIDE
     Route: 058
  2. BYETTA [Suspect]
     Active Substance: EXENATIDE
     Dosage: UNKNOWN UNKNOWN
     Route: 058

REACTIONS (3)
  - Weight decreased [Recovered/Resolved]
  - Weight increased [Unknown]
  - Product solubility abnormal [Unknown]
